FAERS Safety Report 5525758-X (Version None)
Quarter: 2007Q4

REPORT INFORMATION
  Report Type: 
  Country: None (occurrence: None)
  Receive Date: 20071126
  Receipt Date: 20071112
  Transmission Date: 20080405
  Serious: Yes (Hospitalization)
  Sender: FDA-Public Use
  Company Number: JP-ROCHE-530197

PATIENT
  Age: 57 Year
  Sex: Female

DRUGS (2)
  1. KYTRIL [Suspect]
     Route: 065
  2. HERCEPTIN [Suspect]
     Indication: BREAST CANCER
     Dosage: TWO DOSES WERE INTERRUPTED FOR TWO WEEKS.
     Route: 041
     Dates: start: 20070801, end: 20071001

REACTIONS (1)
  - POLYMYOSITIS [None]
